FAERS Safety Report 20843336 (Version 1)
Quarter: 2022Q2

REPORT INFORMATION
  Report Type: Spontaneous
  Country: US (occurrence: US)
  Receive Date: 20220518
  Receipt Date: 20220518
  Transmission Date: 20220721
  Serious: No
  Sender: FDA-Public Use
  Company Number: US-BRISTOL-MYERS SQUIBB COMPANY-2022-039795

PATIENT
  Age: 70 Year
  Sex: Male

DRUGS (2)
  1. POMALYST [Suspect]
     Active Substance: POMALIDOMIDE
     Indication: Plasma cell myeloma
     Dosage: DOSE : UNAVAILABLE;     FREQ : ^1 CAPSULE BY MOUTH DAILY 21 DAYS, 7^
     Route: 048
     Dates: start: 20210912
  2. COVID VACCINE [Concomitant]
     Indication: COVID-19 immunisation
     Dosage: UNAVAILABLE

REACTIONS (2)
  - Adverse event [Unknown]
  - Intentional product use issue [Unknown]
